FAERS Safety Report 6060216-8 (Version None)
Quarter: 2009Q1

REPORT INFORMATION
  Report Type: 
  Country: None (occurrence: None)
  Receive Date: 20090129
  Receipt Date: 20090121
  Transmission Date: 20090719
  Serious: Yes (Hospitalization)
  Sender: FDA-Public Use
  Company Number: DEP_00225_2009

PATIENT
  Age: 46 Year
  Sex: Male

DRUGS (6)
  1. CIPROFLOXACIN [Suspect]
     Indication: OFF LABEL USE
     Dosage: (400 MG BID INTRAVENOUS))
     Route: 042
  2. CIPROFLOXACIN [Suspect]
     Indication: UROSEPSIS
     Dosage: (400 MG BID INTRAVENOUS))
     Route: 042
  3. CLOZAPINE [Suspect]
     Indication: SCHIZOPHRENIA, PARANOID TYPE
     Dosage: (900 MG)
  4. CITALOPRAM HYDROBROMIDE [Concomitant]
  5. LORAZEPAM [Concomitant]
  6. VALPROIC ACID [Concomitant]

REACTIONS (4)
  - ANTIPSYCHOTIC DRUG LEVEL ABOVE THERAPEUTIC [None]
  - DRUG INTERACTION [None]
  - RHABDOMYOLYSIS [None]
  - WEIGHT DECREASED [None]
